FAERS Safety Report 9233628 (Version 3)
Quarter: 2013Q2

REPORT INFORMATION
  Report Type: Report from Study
  Country: US (occurrence: US)
  Receive Date: 20130416
  Receipt Date: 20130615
  Transmission Date: 20140414
  Serious: Yes (Other)
  Sender: FDA-Public Use
  Company Number: US-GENZYME-MOZO-1000839

PATIENT
  Age: 14 Year
  Sex: Female

DRUGS (24)
  1. MOZOBIL [Suspect]
     Indication: HAEMATOPOIETIC STEM CELL MOBILISATION
     Dosage: CYCLE1
     Route: 065
     Dates: start: 20130402, end: 20130408
  2. MOZOBIL [Suspect]
     Dosage: CYCLE2
     Route: 065
     Dates: start: 20130529
  3. CYTARABINE [Suspect]
     Indication: ACUTE LEUKAEMIA
     Dosage: CYCLE1
     Route: 065
     Dates: start: 20130402, end: 20130408
  4. CYTARABINE [Suspect]
     Dosage: CYCLE2
     Route: 065
     Dates: start: 20130529
  5. ETOPOSIDE [Suspect]
     Indication: ACUTE LEUKAEMIA
     Dosage: UNK
     Route: 065
     Dates: start: 20130402, end: 20130405
  6. ETOPOSIDE [Suspect]
     Dosage: UNK (ADMINISTERED AT A SLOWER RATE OVER 4 HOURS)
     Route: 065
     Dates: start: 201304, end: 20130408
  7. ETOPOSIDE [Suspect]
     Dosage: CYCLE2
     Route: 065
     Dates: start: 20130529
  8. ACETAMINOPHEN [Concomitant]
     Indication: PRODUCT USED FOR UNKNOWN INDICATION
     Dosage: 650 MG, UNK
     Route: 065
     Dates: start: 20130323
  9. DIPHENHYDRAMINE [Concomitant]
     Indication: PRODUCT USED FOR UNKNOWN INDICATION
     Dosage: 50 MG, UNK
     Route: 065
     Dates: start: 20130323
  10. DIPHENHYDRAMINE [Concomitant]
     Dosage: 25 MG, UNK
     Route: 065
     Dates: start: 20130527
  11. DIPHENHYDRAMINE [Concomitant]
     Dosage: 50 MG, UNK
     Route: 065
     Dates: start: 20130603, end: 20130604
  12. HYDROXYZINE [Concomitant]
     Indication: PRODUCT USED FOR UNKNOWN INDICATION
     Dosage: 20 MG, UNK
     Route: 065
     Dates: start: 20130402, end: 20130402
  13. VANCOMYCIN [Concomitant]
     Indication: PRODUCT USED FOR UNKNOWN INDICATION
     Dosage: 750 MG, UNK
     Route: 065
     Dates: start: 20130402
  14. KETAMINE HYDROCHLORIDE [Concomitant]
     Indication: PRODUCT USED FOR UNKNOWN INDICATION
     Dosage: 100-150 MCG/KG/HR
     Route: 065
     Dates: start: 20130422, end: 20130423
  15. ACYCLOVIR [Concomitant]
     Indication: PRODUCT USED FOR UNKNOWN INDICATION
     Dosage: 400 MG, UNK
     Route: 065
     Dates: start: 20130529
  16. LORAZEPAM [Concomitant]
     Indication: PRODUCT USED FOR UNKNOWN INDICATION
     Dosage: 1 MG, UNK
     Route: 065
     Dates: start: 20130529
  17. HYDROMORPHONE [Concomitant]
     Indication: PRODUCT USED FOR UNKNOWN INDICATION
     Dosage: 1 MG, UNK
     Route: 065
     Dates: start: 20130510
  18. MICAFUNGIN SODIUM [Concomitant]
     Indication: PRODUCT USED FOR UNKNOWN INDICATION
     Dosage: 100 MG, UNK
     Route: 065
     Dates: start: 20130526
  19. OMEPRAZOLE [Concomitant]
     Indication: PRODUCT USED FOR UNKNOWN INDICATION
     Dosage: 20 MG, UNK
     Route: 065
     Dates: start: 20130517
  20. ONDANSETRON [Concomitant]
     Indication: PRODUCT USED FOR UNKNOWN INDICATION
     Dosage: 8 MG, UNK
     Route: 065
     Dates: start: 20130521
  21. PIPERACILLIN W [Concomitant]
     Indication: PROPHYLAXIS
     Dosage: UNK
     Route: 065
  22. NABILONE [Concomitant]
     Indication: PRODUCT USED FOR UNKNOWN INDICATION
     Dosage: UNK
     Route: 065
  23. FUROSEMIDE [Concomitant]
     Indication: PRODUCT USED FOR UNKNOWN INDICATION
     Dosage: 10 MG, UNK
     Route: 065
     Dates: start: 20130406, end: 20130406
  24. METRONIDAZOLE [Concomitant]
     Indication: PRODUCT USED FOR UNKNOWN INDICATION
     Dosage: 500 MG, UNK
     Route: 065
     Dates: start: 20130412

REACTIONS (17)
  - Hypokalaemia [Recovered/Resolved]
  - Pulmonary oedema [Recovered/Resolved]
  - Hypoxia [Recovered/Resolved]
  - Hypotension [Recovered/Resolved]
  - Caecitis [Unknown]
  - Hypotension [Recovered/Resolved]
  - Hypokalaemia [Unknown]
  - Hypertension [Recovered/Resolved]
  - Hypotension [Recovered/Resolved]
  - Syncope [Recovered/Resolved]
  - Hypotension [Recovered/Resolved]
  - Syncope [Recovered/Resolved]
  - Fluid overload [Unknown]
  - Rash maculo-papular [Unknown]
  - Hypertension [Recovered/Resolved]
  - Presyncope [Recovered/Resolved]
  - Hypotension [Recovered/Resolved]
